FAERS Safety Report 18939557 (Version 1)
Quarter: 2021Q1

REPORT INFORMATION
  Report Type: Report from Study
  Country: US (occurrence: US)
  Receive Date: 20210225
  Receipt Date: 20210225
  Transmission Date: 20210420
  Serious: Yes (Hospitalization)
  Sender: FDA-Public Use
  Company Number: US-BAYER-2021-051591

PATIENT
  Age: 59 Year
  Sex: Female
  Weight: 140.59 kg

DRUGS (4)
  1. ADEMPAS [Suspect]
     Active Substance: RIOCIGUAT
     Indication: PULMONARY ARTERIAL HYPERTENSION
     Dosage: 2.5 MG, TID
     Route: 048
  2. ORENITRAM [Concomitant]
     Active Substance: TREPROSTINIL
     Indication: PULMONARY ARTERIAL HYPERTENSION
  3. ADEMPAS [Suspect]
     Active Substance: RIOCIGUAT
     Indication: PULMONARY ARTERIAL HYPERTENSION
     Dosage: UNK
     Route: 048
     Dates: start: 20180423
  4. ORENITRAM [Concomitant]
     Active Substance: TREPROSTINIL
     Indication: PULMONARY ARTERIAL HYPERTENSION
     Dosage: 13 MG, Q8HR
     Route: 048

REACTIONS (7)
  - Dizziness [None]
  - Hypotension [None]
  - Hospitalisation [None]
  - Peripheral swelling [Unknown]
  - Pulmonary hypertension [None]
  - Chronic obstructive pulmonary disease [None]
  - Dyspnoea [Unknown]

NARRATIVE: CASE EVENT DATE: 20210112
